FAERS Safety Report 9266245 (Version 3)
Quarter: 2013Q2

REPORT INFORMATION
  Report Type: Spontaneous
  Country: US (occurrence: US)
  Receive Date: 20130502
  Receipt Date: 20130618
  Transmission Date: 20140414
  Serious: No
  Sender: FDA-Public Use
  Company Number: US-009507513-1305USA000054

PATIENT
  Age: 61 Year
  Sex: Male
  Weight: 77.98 kg

DRUGS (8)
  1. VICTRELIS [Suspect]
     Dosage: FOUR 200 MG CAPSULES, EVERY 7-9 HOURS
     Route: 048
  2. ASPIRIN [Concomitant]
     Dosage: 81 MG, UNK
  3. NEXIUM [Concomitant]
     Dosage: 40 MG, UNK
  4. PEGASYS [Concomitant]
     Dosage: 180 MCG/M
  5. PEGASYS [Concomitant]
     Dosage: 135 MCG
  6. RIBAPAK [Concomitant]
     Dosage: 1200/DAY
  7. AMLODIPINE [Concomitant]
     Dosage: 40 MG, UNK
  8. LISINOPRIL [Concomitant]
     Dosage: 5 MG, UNK

REACTIONS (3)
  - Chills [Unknown]
  - Fatigue [Unknown]
  - Platelet count decreased [Unknown]
